FAERS Safety Report 7787672-9 (Version None)
Quarter: 2011Q3

REPORT INFORMATION
  Report Type: 
  Country: None (occurrence: None)
  Receive Date: 20110929
  Receipt Date: 20100325
  Transmission Date: 20111222
  Serious: Yes (Hospitalization, Other)
  Sender: FDA-Public Use
  Company Number: US-BAYER-200941478NA

PATIENT
  Age: 31 Year
  Sex: Female
  Weight: 77.098 kg

DRUGS (4)
  1. LEVOXYL [Concomitant]
     Dosage: UNK
     Dates: start: 20010101
  2. YASMIN [Suspect]
     Indication: CONTRACEPTION
     Dates: start: 20020601, end: 20090601
  3. DROSPIRENONE AND ETHINYL ESTRADIOL [Suspect]
     Indication: CONTRACEPTION
     Dosage: UNK
     Dates: start: 20020601, end: 20090601
  4. NAPROXEN (ALEVE) [Concomitant]

REACTIONS (4)
  - GALLBLADDER INJURY [None]
  - ABDOMINAL PAIN UPPER [None]
  - NAUSEA [None]
  - CHOLECYSTITIS CHRONIC [None]
